FAERS Safety Report 7295277-1 (Version None)
Quarter: 2011Q1

REPORT INFORMATION
  Report Type: 
  Country: None (occurrence: None)
  Receive Date: 20110216
  Receipt Date: 20110214
  Transmission Date: 20110831
  Serious: Yes (Other)
  Sender: FDA-Public Use
  Company Number: NO-PFIZER INC-2011033154

PATIENT
  Age: 19 Year
  Sex: Male

DRUGS (1)
  1. CELEBRA [Suspect]
     Dosage: UNK

REACTIONS (3)
  - FATIGUE [None]
  - ERECTILE DYSFUNCTION [None]
  - SLEEP DISORDER [None]
